FAERS Safety Report 19250239 (Version 1)
Quarter: 2021Q2

REPORT INFORMATION
  Report Type: Spontaneous
  Country: CA (occurrence: CA)
  Receive Date: 20210512
  Receipt Date: 20210512
  Transmission Date: 20210717
  Serious: Yes (Other)
  Sender: FDA-Public Use
  Company Number: CA-PURDUE-USA-2021-0257863

PATIENT
  Age: 30 Year
  Sex: Male

DRUGS (6)
  1. THEOPHYLLINE (040086, 087571 RHODES) [Suspect]
     Active Substance: THEOPHYLLINE ANHYDROUS
     Indication: PRODUCT USED FOR UNKNOWN INDICATION
     Dosage: UNK
     Route: 065
  2. SALBUTAMOL SULFATE [Suspect]
     Active Substance: ALBUTEROL SULFATE
     Indication: ASTHMA
     Dosage: UNK
     Route: 065
  3. FORMOTEROL W/MOMETASONE [Suspect]
     Active Substance: FORMOTEROL\MOMETASONE
     Indication: ASTHMA
     Dosage: 2 DF, BID
     Route: 065
  4. MONTELUKAST [Suspect]
     Active Substance: MONTELUKAST SODIUM
     Indication: ASTHMA
     Dosage: 10 MG, DAILY
     Route: 065
  5. ALVESCO [Suspect]
     Active Substance: CICLESONIDE
     Indication: ASTHMA
     Dosage: 2 DF, BID
     Route: 055
  6. NUCALA [Suspect]
     Active Substance: MEPOLIZUMAB
     Indication: ASTHMA
     Dosage: 100 MG, UNK
     Route: 065

REACTIONS (3)
  - Asthma [Unknown]
  - Therapeutic product effect incomplete [Unknown]
  - Eosinophil count abnormal [Unknown]
